FAERS Safety Report 6012428-7 (Version None)
Quarter: 2008Q4

REPORT INFORMATION
  Report Type: 
  Country: None (occurrence: None)
  Receive Date: 20081218
  Receipt Date: 20081209
  Transmission Date: 20090506
  Serious: Yes (Other)
  Sender: FDA-Public Use
  Company Number: US-ELI_LILLY_AND_COMPANY-US200810000831

PATIENT
  Sex: Female

DRUGS (8)
  1. FORTEO [Suspect]
     Indication: BONE DISORDER
     Dates: start: 20080501
  2. PROTONIX [Concomitant]
  3. NIFEREX [Concomitant]
     Dosage: 750 MG, UNK
  4. PACERONE [Concomitant]
  5. WARFARIN SODIUM [Concomitant]
  6. METOPROLOL TARTRATE [Concomitant]
  7. NORCO [Concomitant]
     Dosage: 7.5 MG, UNK
  8. PRILOSEC [Concomitant]

REACTIONS (5)
  - ARRHYTHMIA [None]
  - CORONARY ARTERY DISEASE [None]
  - HYPERCHOLESTEROLAEMIA [None]
  - HYPERTENSION [None]
  - URINARY TRACT INFECTION [None]
